FAERS Safety Report 18049641 (Version 2)
Quarter: 2020Q3

REPORT INFORMATION
  Report Type: Spontaneous
  Country: SK (occurrence: SK)
  Receive Date: 20200721
  Receipt Date: 20200813
  Transmission Date: 20201103
  Serious: Yes (Death, Hospitalization, Other)
  Sender: FDA-Public Use
  Company Number: SK-REGENERON PHARMACEUTICALS, INC.-2020-51199

PATIENT

DRUGS (23)
  1. DIAPREL [Concomitant]
     Active Substance: GLICLAZIDE
     Dosage: UNK,120 * 60 MG
  2. EBRANTIL [Concomitant]
     Active Substance: URAPIDIL
     Dosage: UNK,50 * 30 MG
  3. PREVENTAX [Concomitant]
     Dosage: UNK,50 * 100 MG
  4. LUSOPRESS [Concomitant]
     Active Substance: NITRENDIPINE
     Dosage: UNK
  5. PYRIDOXIN [Concomitant]
     Active Substance: PYRIDOXINE
     Dosage: UNK
  6. VIGANTOL [Concomitant]
     Dosage: UNK, QW,20 KV
  7. LAGOSA [Concomitant]
     Active Substance: DIETARY SUPPLEMENT\HERBALS\MILK THISTLE
     Dosage: UNK,100 * 150 MG
  8. UROSAN [Concomitant]
     Dosage: UNK,100 * 250 MG
  9. CORVATON [Concomitant]
     Active Substance: MOLSIDOMINE
     Dosage: UNK,30 * 8 MG
  10. AMLOPIN [Concomitant]
     Dosage: UNK,30 * 5 MG
  11. HYDROCORTISONE MEDOPHARM [Concomitant]
     Dosage: UNK
  12. CALCIUM CARBONATE. [Concomitant]
     Active Substance: CALCIUM CARBONATE
     Dosage: UNK,3 * 1
  13. OZZION [Concomitant]
     Dosage: UNK,28 * 40 MG
  14. FURON [Concomitant]
     Active Substance: FUROSEMIDE
     Dosage: UNK,50 * 40 MG
  15. MILURIT [Concomitant]
     Active Substance: ALLOPURINOL
     Dosage: UNK,30 * 300 MG
  16. PRALUENT [Suspect]
     Active Substance: ALIROCUMAB
     Indication: TYPE V HYPERLIPIDAEMIA
     Dosage: 75 MG
     Route: 058
     Dates: start: 201903
  17. BETALOC ZOK [Concomitant]
     Active Substance: METOPROLOL SUCCINATE
     Dosage: UNK,28 * 25 MG
  18. ACIDUM FOLICUM [Concomitant]
     Active Substance: FOLIC ACID
     Dosage: UNK,1?0?0
  19. ATORIS [Concomitant]
     Active Substance: ATORVASTATIN CALCIUM
     Dosage: UNK
  20. RILMEX [Concomitant]
     Dosage: UNK,30 * 1 MG
  21. CELASKON [Concomitant]
     Dosage: UNK
  22. ENELBIN N [Concomitant]
     Dosage: UNK,1?0?1
  23. ZEMPLAR [Concomitant]
     Active Substance: PARICALCITOL
     Dosage: UNK

REACTIONS (20)
  - Arteriovenous fistula site haemorrhage [Unknown]
  - Arteriovenous fistula [Unknown]
  - Atrioventricular block [Unknown]
  - Bradycardia [Unknown]
  - Duodenal ulcer [Unknown]
  - Asthenia [Unknown]
  - Feeling abnormal [Unknown]
  - Hypercalcaemia [Unknown]
  - Nephrogenic anaemia [Unknown]
  - Dizziness [Unknown]
  - Death [Fatal]
  - Normocytic anaemia [Unknown]
  - Myocardial ischaemia [Unknown]
  - Acute myocardial infarction [Unknown]
  - Chronic kidney disease [Unknown]
  - Hyperkalaemia [Unknown]
  - Atrial fibrillation [Unknown]
  - Nausea [Unknown]
  - Vomiting [Unknown]
  - Arteriovenous fistula site haematoma [Unknown]

NARRATIVE: CASE EVENT DATE: 201905
